FAERS Safety Report 4705887-0 (Version None)
Quarter: 2005Q2

REPORT INFORMATION
  Report Type: 
  Country: None (occurrence: None)
  Receive Date: 20050629
  Receipt Date: 20050421
  Transmission Date: 20051028
  Serious: Yes (Hospitalization)
  Sender: FDA-Public Use
  Company Number: 05P-163-0298102-00

PATIENT
  Age: 72 Year
  Sex: Female
  Weight: 65.7716 kg

DRUGS (8)
  1. HUMIRA [Suspect]
     Indication: RHEUMATOID ARTHRITIS
     Dosage: 40 MG, 1 IN 2 WK, SUBCUTANEOUS; 40 MG, 1 IN 1 WK, SUBCUTANEOUS
     Route: 058
     Dates: start: 20040701, end: 20040901
  2. HUMIRA [Suspect]
     Indication: RHEUMATOID ARTHRITIS
     Dosage: 40 MG, 1 IN 2 WK, SUBCUTANEOUS; 40 MG, 1 IN 1 WK, SUBCUTANEOUS
     Route: 058
     Dates: start: 20040901, end: 20050101
  3. INSULIN [Concomitant]
  4. GABAPENTIN [Concomitant]
  5. VICODIN [Concomitant]
  6. MULTI-VITAMINS [Concomitant]
  7. INDOMETHACIN [Concomitant]
  8. METHOTREXATE [Concomitant]

REACTIONS (7)
  - BRONCHITIS [None]
  - CYSTITIS [None]
  - FATIGUE [None]
  - GAIT DISTURBANCE [None]
  - INFECTION [None]
  - PYREXIA [None]
  - RHEUMATOID ARTHRITIS [None]
